FAERS Safety Report 17185113 (Version 3)
Quarter: 2020Q1

REPORT INFORMATION
  Report Type: Spontaneous
  Country: US (occurrence: US)
  Receive Date: 20191220
  Receipt Date: 20200128
  Transmission Date: 20200409
  Serious: Yes (Hospitalization, Other)
  Sender: FDA-Public Use
  Company Number: US-VERTEX PHARMACEUTICALS-2019-013102

PATIENT
  Sex: Male

DRUGS (2)
  1. URSODIOL. [Concomitant]
     Active Substance: URSODIOL
  2. SYMDEKO [Suspect]
     Active Substance: IVACAFTOR\TEZACAFTOR
     Indication: CYSTIC FIBROSIS
     Dosage: 1 TABLET EVERY 12 HOURS
     Route: 048
     Dates: start: 20180925

REACTIONS (2)
  - Oesophageal varices haemorrhage [Recovered/Resolved]
  - Portal hypertension [Unknown]

NARRATIVE: CASE EVENT DATE: 2019
